FAERS Safety Report 13708631 (Version 2)
Quarter: 2017Q3

REPORT INFORMATION
  Report Type: Spontaneous
  Country: US (occurrence: US)
  Receive Date: 20170630
  Receipt Date: 20170718
  Transmission Date: 20171127
  Serious: Yes (Life-Threatening, Hospitalization)
  Sender: FDA-Public Use
  Company Number: US-ACTELION-A-US2017-155716

PATIENT
  Age: 5 Year
  Sex: Male

DRUGS (3)
  1. TRACLEER [Suspect]
     Active Substance: BOSENTAN
     Dosage: 31.25 MG, BID
     Route: 048
     Dates: start: 20170309
  2. TRACLEER [Suspect]
     Active Substance: BOSENTAN
     Indication: PULMONARY ARTERIAL HYPERTENSION
     Dosage: 62.5 MG X 3 DOSES
     Route: 048
     Dates: start: 20170615, end: 20170616
  3. TRACLEER [Suspect]
     Active Substance: BOSENTAN
     Dosage: 31.25 MG, BID
     Route: 048

REACTIONS (4)
  - Accidental overdose [Recovered/Resolved]
  - Dyspnoea [Not Recovered/Not Resolved]
  - No adverse event [Recovered/Resolved]
  - Lethargy [Not Recovered/Not Resolved]

NARRATIVE: CASE EVENT DATE: 20170615
